FAERS Safety Report 14013861 (Version 2)
Quarter: 2017Q4

REPORT INFORMATION
  Report Type: Spontaneous
  Country: US (occurrence: US)
  Receive Date: 20170926
  Receipt Date: 20171006
  Transmission Date: 20180321
  Serious: Yes (Other)
  Sender: FDA-Public Use
  Company Number: US-BAUSCH-BL-2017-028072

PATIENT
  Sex: Male
  Weight: 62.2 kg

DRUGS (1)
  1. XENAZINE [Suspect]
     Active Substance: TETRABENAZINE
     Indication: TOURETTE^S DISORDER
     Route: 048
     Dates: start: 201608

REACTIONS (5)
  - Depression [Unknown]
  - Tourette^s disorder [Unknown]
  - Anxiety [Unknown]
  - Stress [Unknown]
  - Off label use [Not Recovered/Not Resolved]
